FAERS Safety Report 16122733 (Version 1)
Quarter: 2019Q1

REPORT INFORMATION
  Report Type: Spontaneous
  Country: US (occurrence: US)
  Receive Date: 20190327
  Receipt Date: 20190327
  Transmission Date: 20190418
  Serious: Yes (Other)
  Sender: FDA-Public Use
  Company Number: US-JNJFOC-20190329297

PATIENT
  Age: 59 Year
  Sex: Female

DRUGS (2)
  1. INVOKANA [Suspect]
     Active Substance: CANAGLIFLOZIN
     Indication: PRODUCT USED FOR UNKNOWN INDICATION
     Route: 048
  2. INVOKAMET [Suspect]
     Active Substance: CANAGLIFLOZIN\METFORMIN HYDROCHLORIDE
     Indication: TYPE 2 DIABETES MELLITUS
     Dosage: 150 MG-1,000 MG
     Route: 048

REACTIONS (6)
  - Foot deformity [Unknown]
  - Necrosis ischaemic [Unknown]
  - Infected skin ulcer [Unknown]
  - Product dose omission [Unknown]
  - Osteomyelitis [Unknown]
  - Amputation [Unknown]

NARRATIVE: CASE EVENT DATE: 201412
